FAERS Safety Report 4398383-4 (Version None)
Quarter: 2004Q3

REPORT INFORMATION
  Report Type: 
  Country: None (occurrence: None)
  Receive Date: 20040712
  Receipt Date: 20040628
  Transmission Date: 20050211
  Serious: Yes (Other)
  Sender: FDA-Public Use
  Company Number: 2004043249

PATIENT
  Age: 63 Year
  Sex: Male

DRUGS (6)
  1. HYDROXYZINE HCL [Suspect]
     Indication: ANAESTHESIA
     Dosage: INTRAMUSCULAR
     Route: 030
  2. PROPOFOL [Concomitant]
     Indication: ANAESTHESIA
  3. VECURONIUM [Suspect]
     Indication: ANAESTHESIA
  4. SEVOFLURANE [Suspect]
     Indication: ANAESTHESIA
  5. OXYGEN (OXYGEN) [Suspect]
     Indication: ANAESTHESIA
  6. ATROPINE [Suspect]
     Indication: ANAESTHESIA
     Dosage: INTRAMUSCULAR
     Route: 030

REACTIONS (3)
  - ANAESTHETIC COMPLICATION [None]
  - INTERSTITIAL LUNG DISEASE [None]
  - PULMONARY OEDEMA [None]
